FAERS Safety Report 11201644 (Version 1)
Quarter: 2015Q2

REPORT INFORMATION
  Report Type: Spontaneous
  Country: US (occurrence: None)
  Receive Date: 20150617
  Receipt Date: 20150617
  Transmission Date: 20150821
  Serious: Yes (Hospitalization)
  Sender: FDA-Public Use
  Company Number: None

PATIENT
  Age: 74 Year
  Sex: Female
  Weight: 63.8 kg

DRUGS (8)
  1. GEMCITABINE HYDROCHLORIDE. [Suspect]
     Active Substance: GEMCITABINE HYDROCHLORIDE
     Dates: end: 20150611
  2. METOPROLOL SUCCINATE. [Concomitant]
     Active Substance: METOPROLOL SUCCINATE
  3. LOSARTIN [Concomitant]
     Active Substance: LOSARTAN
  4. PANTOPRAZOLE [Concomitant]
     Active Substance: PANTOPRAZOLE SODIUM
  5. ASPIRIN. [Concomitant]
     Active Substance: ASPIRIN
  6. METHOTREXATE [Concomitant]
     Active Substance: METHOTREXATE
  7. AMLODIPINE [Concomitant]
     Active Substance: AMLODIPINE BESYLATE
  8. SIMVASTATIN. [Concomitant]
     Active Substance: SIMVASTATIN

REACTIONS (5)
  - Abdominal pain [None]
  - Blood magnesium decreased [None]
  - Blood phosphorus decreased [None]
  - Vomiting [None]
  - Blood potassium decreased [None]

NARRATIVE: CASE EVENT DATE: 20150612
